FAERS Safety Report 19770049 (Version 1)
Quarter: 2021Q3

REPORT INFORMATION
  Report Type: Spontaneous
  Country: US (occurrence: US)
  Receive Date: 20210830
  Receipt Date: 20210830
  Transmission Date: 20211014
  Serious: No
  Sender: FDA-Public Use
  Company Number: None

PATIENT
  Age: 75 Year
  Sex: Male

DRUGS (1)
  1. BIKTARVY [Suspect]
     Active Substance: BICTEGRAVIR SODIUM\EMTRICITABINE\TENOFOVIR ALAFENAMIDE FUMARATE
     Indication: HIV INFECTION
     Dosage: ?          OTHER DOSE:50/200/25MGD;?
     Route: 048
     Dates: start: 202103, end: 202108

REACTIONS (4)
  - Drug intolerance [None]
  - Abdominal pain [None]
  - Therapy cessation [None]
  - Blood pressure increased [None]

NARRATIVE: CASE EVENT DATE: 202108
